FAERS Safety Report 9733295 (Version 1)
Quarter: 2013Q4

REPORT INFORMATION
  Report Type: Spontaneous
  Country: US (occurrence: None)
  Receive Date: 20131204
  Receipt Date: 20131204
  Transmission Date: 20140711
  Serious: Yes (Hospitalization)
  Sender: FDA-Public Use
  Company Number: None

PATIENT
  Age: 66 Year
  Sex: Female
  Weight: 56.8 kg

DRUGS (1)
  1. PONATINIB [Suspect]
     Route: 048
     Dates: start: 20131202

REACTIONS (6)
  - Febrile neutropenia [None]
  - Asthenia [None]
  - Nausea [None]
  - Vomiting [None]
  - Headache [None]
  - Performance status decreased [None]
